FAERS Safety Report 4704265-8 (Version None)
Quarter: 2005Q2

REPORT INFORMATION
  Report Type: 
  Country: None (occurrence: None)
  Receive Date: 20050628
  Receipt Date: 20050616
  Transmission Date: 20051028
  Serious: Yes (Hospitalization)
  Sender: FDA-Public Use
  Company Number: CH-2005-011329

PATIENT
  Age: 72 Year
  Sex: Male

DRUGS (7)
  1. SOTALOL HCL [Suspect]
     Indication: ATRIAL FIBRILLATION
     Dosage: ORAL
     Route: 048
     Dates: start: 20050201, end: 20050522
  2. TAMBOCOR [Suspect]
     Dosage: ORAL
     Route: 047
     Dates: start: 20050201, end: 20050522
  3. COZAAR [Concomitant]
  4. LEVOTHYROXINE SODIUM [Concomitant]
  5. COUMADIN [Concomitant]
  6. CORDARONE [Concomitant]
  7. PROPRANOLOL [Concomitant]

REACTIONS (6)
  - ACUTE STRESS DISORDER [None]
  - BRADYCARDIA [None]
  - DRUG INTERACTION [None]
  - HYPOTENSION [None]
  - NODAL ARRHYTHMIA [None]
  - PALLOR [None]
